FAERS Safety Report 8792074 (Version 3)
Quarter: 2012Q4

REPORT INFORMATION
  Report Type: 
  Country: JP (occurrence: JP)
  Receive Date: 20120918
  Receipt Date: 20121123
  Transmission Date: 20130627
  Serious: Yes (Hospitalization)
  Sender: FDA-Public Use
  Company Number: JP-PFIZER INC-2012224282

PATIENT
  Age: 87 Year
  Sex: Female
  Weight: 41.2 kg

DRUGS (8)
  1. AZULFIDINE EN [Suspect]
     Indication: RA
     Dosage: 500 mg, 2x/day
     Route: 048
     Dates: start: 20120724, end: 20120817
  2. HYPEN [Suspect]
     Dosage: 200 mg, 2x/day
     Route: 048
     Dates: start: 20120717, end: 20120821
  3. PREDONINE [Suspect]
     Dosage: 10 mg, alternate day
     Route: 048
     Dates: start: 20120717
  4. PANTOSIN [Concomitant]
     Dosage: 0.67 g, 3x/day
  5. SELBEX [Concomitant]
     Dosage: 50 mg, 3x/day
  6. MAG-LAX [Concomitant]
     Dosage: 330 mg, 3x/day
  7. PANVITAN [Concomitant]
     Dosage: 1 g, 2x/day
  8. JUVELA NICOTINATE [Concomitant]
     Dosage: 100 mg, 3x/day

REACTIONS (4)
  - Liver disorder [Recovering/Resolving]
  - Drug eruption [Recovering/Resolving]
  - Decreased appetite [Unknown]
  - Malaise [Unknown]
